FAERS Safety Report 8153926-X (Version None)
Quarter: 2012Q1

REPORT INFORMATION
  Report Type: 
  Country: None (occurrence: None)
  Receive Date: 20120221
  Receipt Date: 20120221
  Transmission Date: 20120608
  Serious: Yes (Disabling)
  Sender: FDA-Public Use
  Company Number: None

PATIENT
  Sex: Female
  Weight: 87.089 kg

DRUGS (2)
  1. PROMETHAZINE [Suspect]
     Indication: NAUSEA
     Dosage: 12.5MG
     Route: 042
     Dates: start: 20120211, end: 20120211
  2. PROMETHAZINE [Suspect]
     Indication: VOMITING
     Dosage: 12.5MG
     Route: 042
     Dates: start: 20120211, end: 20120211

REACTIONS (2)
  - EXTRAPYRAMIDAL DISORDER [None]
  - MUSCLE SPASMS [None]
